FAERS Safety Report 8976279 (Version 1)
Quarter: 2012Q4

REPORT INFORMATION
  Report Type: 
  Country: JP (occurrence: JP)
  Receive Date: 20121220
  Receipt Date: 20121220
  Transmission Date: 20130627
  Serious: Yes (Hospitalization)
  Sender: FDA-Public Use
  Company Number: JP-JNJFOC-20121111667

PATIENT
  Age: 81 Year
  Sex: Male

DRUGS (9)
  1. REMINYL [Suspect]
     Indication: DEMENTIA ALZHEIMER^S TYPE
     Route: 048
     Dates: start: 20120604, end: 2012
  2. REMINYL [Suspect]
     Indication: DEMENTIA ALZHEIMER^S TYPE
     Route: 048
     Dates: start: 201205, end: 20120603
  3. BAYASPIRIN [Concomitant]
     Route: 048
  4. NIFEDIPINE [Concomitant]
     Route: 048
  5. DIOVAN [Concomitant]
     Route: 048
  6. NICORANDIL [Concomitant]
     Route: 048
  7. FRANDOL [Concomitant]
     Route: 062
  8. UNKNOWN MEDICATION [Concomitant]
     Route: 048
  9. CARDENALIN [Concomitant]
     Route: 065

REACTIONS (2)
  - Altered state of consciousness [Unknown]
  - Pollakiuria [Recovered/Resolved]
